FAERS Safety Report 6790140-4 (Version None)
Quarter: 2010Q2

REPORT INFORMATION
  Report Type: 
  Country: None (occurrence: None)
  Receive Date: 20100624
  Receipt Date: 20100615
  Transmission Date: 20101027
  Serious: Yes (Hospitalization)
  Sender: FDA-Public Use
  Company Number: FR-ASTRAZENECA-2010SE28601

PATIENT
  Age: 23064 Day
  Sex: Female

DRUGS (10)
  1. NEXIUM [Suspect]
     Indication: GASTRIC ULCER
     Route: 048
  2. CRESTOR [Suspect]
     Indication: PROPHYLAXIS
     Route: 048
  3. BYETTA [Suspect]
     Indication: TYPE 2 DIABETES MELLITUS
     Route: 058
     Dates: start: 20100508
  4. TRIATEC [Suspect]
     Indication: HYPERTENSION
     Route: 048
  5. REVATIO [Concomitant]
     Indication: PULMONARY ARTERIAL HYPERTENSION
     Route: 048
  6. PREVISCAN [Concomitant]
     Indication: ARRHYTHMIA
     Route: 048
  7. HEMIGOXINE NATIVELLE [Concomitant]
     Indication: CARDIAC FAILURE
     Route: 048
  8. LASIX [Concomitant]
     Indication: CARDIAC FAILURE
     Route: 048
  9. HUMALOG [Concomitant]
     Indication: DIABETES MELLITUS
     Route: 058
  10. DIFFU K [Concomitant]
     Indication: BLOOD POTASSIUM DECREASED
     Route: 048

REACTIONS (1)
  - LOCALISED OEDEMA [None]
